FAERS Safety Report 4747536-1 (Version None)
Quarter: 2005Q3

REPORT INFORMATION
  Report Type: 
  Country: None (occurrence: None)
  Receive Date: 20050816
  Receipt Date: 20050808
  Transmission Date: 20060218
  Serious: Yes (Other)
  Sender: FDA-Public Use
  Company Number: GBWYE889008AUG05

PATIENT
  Sex: Female

DRUGS (1)
  1. EFFEXOR [Suspect]
     Dosage: 37.5 MG 1X PER 1 DAY ; 37.5 MG 2X PER 1 DAY

REACTIONS (4)
  - ASTHENIA [None]
  - CONVULSION [None]
  - HEMIPARESIS [None]
  - SLEEP PARALYSIS [None]
